FAERS Safety Report 9333350 (Version 1)
Quarter: 2013Q2

REPORT INFORMATION
  Report Type: Spontaneous
  Country: NL (occurrence: NL)
  Receive Date: 20130606
  Receipt Date: 20130606
  Transmission Date: 20140414
  Serious: Yes (Other)
  Sender: FDA-Public Use
  Company Number: NL-PFIZER INC-2013120873

PATIENT
  Sex: Male
  Weight: 80 kg

DRUGS (2)
  1. PANTOZOL [Suspect]
     Dosage: UNK
     Route: 048
  2. NEXIUM [Concomitant]
     Dosage: UNK
     Route: 048

REACTIONS (2)
  - Tinnitus [Unknown]
  - Insomnia [Unknown]
